FAERS Safety Report 25114749 (Version 2)
Quarter: 2025Q2

REPORT INFORMATION
  Report Type: Spontaneous
  Country: BE (occurrence: BE)
  Receive Date: 20250324
  Receipt Date: 20250514
  Transmission Date: 20250716
  Serious: Yes (Death, Hospitalization)
  Sender: Alora Pharma
  Company Number: BE-OSMOTICA PHARMACEUTICALS-2025ALO02104

PATIENT
  Age: 38 Year
  Sex: Female

DRUGS (3)
  1. VENLAFAXINE [Suspect]
     Active Substance: VENLAFAXINE HYDROCHLORIDE
     Route: 048
  2. BENZODIAZEPINE [Concomitant]
     Active Substance: BENZODIAZEPINE
     Route: 048
  3. ALCOHOL [Concomitant]
     Active Substance: ALCOHOL
     Route: 048

REACTIONS (13)
  - Hypoxia [Fatal]
  - Cardiac failure acute [Fatal]
  - Ejection fraction decreased [Not Recovered/Not Resolved]
  - Overdose [None]
  - Hypotension [Not Recovered/Not Resolved]
  - Clonus [Not Recovered/Not Resolved]
  - Acute kidney injury [Not Recovered/Not Resolved]
  - Rhabdomyolysis [Not Recovered/Not Resolved]
  - Hepatic cytolysis [Not Recovered/Not Resolved]
  - Serotonin syndrome [Not Recovered/Not Resolved]
  - Arrhythmia [Not Recovered/Not Resolved]
  - Pneumococcal sepsis [Not Recovered/Not Resolved]
  - Pneumonia [Not Recovered/Not Resolved]
